FAERS Safety Report 17167126 (Version 1)
Quarter: 2019Q4

REPORT INFORMATION
  Report Type: Spontaneous
  Country: FR (occurrence: FR)
  Receive Date: 20191218
  Receipt Date: 20191218
  Transmission Date: 20200122
  Serious: Yes (Other)
  Sender: FDA-Public Use
  Company Number: FR-AUROBINDO-AUR-APL-2019-105084

PATIENT
  Age: 58 Year
  Sex: Male
  Weight: 41 kg

DRUGS (3)
  1. ETOPOSIDE. [Suspect]
     Active Substance: ETOPOSIDE
     Indication: BRONCHIAL CARCINOMA
     Dosage: UNK
     Route: 042
     Dates: start: 20190704, end: 20190925
  2. TECENTRIQ [Suspect]
     Active Substance: ATEZOLIZUMAB
     Indication: BRONCHIAL CARCINOMA
     Dosage: 1 UNK, 3 WEEK
     Route: 041
     Dates: start: 20190704
  3. CARBOPLATIN. [Suspect]
     Active Substance: CARBOPLATIN
     Indication: BRONCHIAL CARCINOMA
     Dosage: UNK
     Route: 042
     Dates: start: 20190704, end: 20190925

REACTIONS (1)
  - Interstitial lung disease [Recovering/Resolving]

NARRATIVE: CASE EVENT DATE: 20191029
